FAERS Safety Report 20774471 (Version 1)
Quarter: 2022Q2

REPORT INFORMATION
  Report Type: Spontaneous
  Country: US (occurrence: None)
  Receive Date: 20220430
  Receipt Date: 20220430
  Transmission Date: 20220720
  Serious: Yes (Life-Threatening, Hospitalization)
  Sender: FDA-Public Use
  Company Number: None

PATIENT
  Age: 60 Year
  Sex: Female
  Weight: 72 kg

DRUGS (4)
  1. SAXENDA [Suspect]
     Active Substance: LIRAGLUTIDE
     Indication: Weight decreased
     Dosage: FREQUENCY : DAILY;?
     Route: 058
  2. ENBREL [Concomitant]
     Active Substance: ETANERCEPT
  3. DULOXETINE [Concomitant]
     Active Substance: DULOXETINE
  4. CLIMARA [Concomitant]
     Active Substance: ESTRADIOL

REACTIONS (9)
  - Bile duct stone [None]
  - Cholecystitis [None]
  - Cholecystectomy [None]
  - Post procedural complication [None]
  - Duodenal perforation [None]
  - Perforation bile duct [None]
  - Pancreatitis [None]
  - Sepsis [None]
  - Abdominal abscess [None]

NARRATIVE: CASE EVENT DATE: 20210827
